FAERS Safety Report 7150331-X (Version None)
Quarter: 2010Q4

REPORT INFORMATION
  Report Type: 
  Country: None (occurrence: None)
  Receive Date: 20101210
  Receipt Date: 20101129
  Transmission Date: 20110411
  Serious: Yes (Hospitalization)
  Sender: FDA-Public Use
  Company Number: US-JNJFOC-20101200606

PATIENT
  Sex: Male
  Weight: 61.24 kg

DRUGS (2)
  1. REMICADE [Suspect]
     Indication: CROHN'S DISEASE
     Route: 042
  2. VITAMIN TAB [Concomitant]
     Indication: MEDICAL DIET
     Route: 048

REACTIONS (2)
  - ABSCESS [None]
  - PAIN [None]
